FAERS Safety Report 8906093 (Version 1)
Quarter: 2012Q4

REPORT INFORMATION
  Report Type: 
  Country: US (occurrence: US)
  Receive Date: 20121113
  Receipt Date: 20121113
  Transmission Date: 20130627
  Serious: No
  Sender: FDA-Public Use
  Company Number: US-009507513-1211USA004962

PATIENT

DRUGS (2)
  1. PROPECIA [Suspect]
     Indication: ANDROGENETIC ALOPECIA
     Dosage: 1 mg, UNK
     Route: 048
     Dates: start: 20000510, end: 20111111
  2. PROSCAR [Suspect]
     Indication: ANDROGENETIC ALOPECIA
     Dosage: 5 mg, UNK
     Route: 048
     Dates: start: 20000510, end: 20111111

REACTIONS (3)
  - Sexual dysfunction [Not Recovered/Not Resolved]
  - Intentional drug misuse [Recovered/Resolved]
  - Cognitive disorder [Not Recovered/Not Resolved]
